FAERS Safety Report 7223342-3 (Version None)
Quarter: 2011Q1

REPORT INFORMATION
  Report Type: 
  Country: None (occurrence: None)
  Receive Date: 20110112
  Receipt Date: 20100511
  Transmission Date: 20110831
  Serious: No
  Sender: FDA-Public Use
  Company Number: US-ALLERGAN-1006226US

PATIENT
  Sex: Female

DRUGS (7)
  1. THERA TEARS [Concomitant]
  2. VITAMIN A [Concomitant]
  3. SYNTHROID [Concomitant]
     Indication: HYPOTHYROIDISM
  4. DIOVAN [Concomitant]
     Indication: HYPERTENSION
  5. CALCIUM [Concomitant]
  6. VITAMIN E [Concomitant]
  7. RESTASIS [Suspect]
     Indication: DRY EYE
     Dosage: UNK
     Route: 047

REACTIONS (1)
  - EYE IRRITATION [None]
